FAERS Safety Report 7546244-1 (Version None)
Quarter: 2011Q2

REPORT INFORMATION
  Report Type: 
  Country: None (occurrence: None)
  Receive Date: 20110614
  Receipt Date: 20040329
  Transmission Date: 20111010
  Serious: Yes (Other)
  Sender: FDA-Public Use
  Company Number: PHFR2004GB01417

PATIENT
  Sex: Male

DRUGS (4)
  1. PRILOSEC [Concomitant]
     Dosage: 40MG/DAY
     Route: 048
     Dates: start: 20030101
  2. RISPERIDONE [Concomitant]
     Dosage: 4MG/DAY
     Route: 048
     Dates: start: 19950101
  3. CLOZAPINE [Suspect]
     Indication: SCHIZOPHRENIA
     Dosage: 325MG/DAY
     Route: 048
     Dates: start: 20030923
  4. CITALOPRAM HYDROBROMIDE [Concomitant]
     Dosage: 20MG/DAY
     Dates: start: 20020101

REACTIONS (6)
  - INFECTION [None]
  - NEUTROPHIL COUNT INCREASED [None]
  - ABDOMINAL PAIN UPPER [None]
  - WHITE BLOOD CELL COUNT INCREASED [None]
  - BODY TEMPERATURE INCREASED [None]
  - HELICOBACTER TEST POSITIVE [None]
